FAERS Safety Report 6202651-0 (Version None)
Quarter: 2009Q2

REPORT INFORMATION
  Report Type: 
  Country: None (occurrence: None)
  Receive Date: 20090520
  Receipt Date: 20090512
  Transmission Date: 20091009
  Serious: Yes (Life-Threatening)
  Sender: FDA-Public Use
  Company Number: TCI2008A05980

PATIENT
  Age: 65 Year
  Sex: Male

DRUGS (2)
  1. ACTOS [Suspect]
     Indication: TYPE 2 DIABETES MELLITUS
     Dosage: 15 MG (15 MG, 1 IN 1 D) PER ORAL
     Route: 048
     Dates: start: 20080613, end: 20081010
  2. PRAVASTATIN [Suspect]
     Dosage: PER ORAL
     Route: 048
     Dates: start: 20080501

REACTIONS (5)
  - HEPATIC ATROPHY [None]
  - HEPATIC ENCEPHALOPATHY [None]
  - HEPATIC STEATOSIS [None]
  - HEPATITIS FULMINANT [None]
  - PROTHROMBIN LEVEL DECREASED [None]
